FAERS Safety Report 7127825-6 (Version None)
Quarter: 2010Q4

REPORT INFORMATION
  Report Type: 
  Country: None (occurrence: None)
  Receive Date: 20101029
  Receipt Date: 20100825
  Transmission Date: 20110411
  Serious: Yes (Death, Life-Threatening, Other)
  Sender: FDA-Public Use
  Company Number: 305817

PATIENT
  Age: 63 Year
  Sex: Male
  Weight: 93 kg

DRUGS (22)
  1. ALTEPLASE(ALTEPLASE) POWDER AND SOLVENT FOR SOLUTION FOR INFUSION, 2MG [Suspect]
     Indication: PULMONARY EMBOLISM
     Dosage: 100 MG, SINGLE, INTRAVENOUS
     Route: 042
     Dates: start: 20080107, end: 20080107
  2. HEPARIN [Suspect]
     Indication: DEEP VEIN THROMBOSIS
     Dosage: INTRAVENOUS
     Route: 042
     Dates: start: 20080106
  3. LOVENOX [Suspect]
     Indication: THROMBOSIS PROPHYLAXIS
     Dosage: 93 MG, BID, SUBCUTANEOUS
     Route: 058
     Dates: start: 20080102, end: 20080106
  4. SINGULAIR [Concomitant]
  5. BAYER CHILDREN'S ASPIRIN (ASPIRIN) [Concomitant]
  6. ZOCOR [Concomitant]
  7. NIACIN [Concomitant]
  8. DIOVAN [Concomitant]
  9. PERCOCET [Concomitant]
  10. ULTRAM [Concomitant]
  11. ATROVENT [Concomitant]
  12. XOPENEX [Concomitant]
  13. ADVAIR DISKUS 100/50 [Concomitant]
  14. LANOXIN [Concomitant]
  15. TYLENOL (ACETAMINOPHEN) [Concomitant]
  16. COLACE (DOCUSATE SODIUM) [Concomitant]
  17. ZOFRAN [Concomitant]
  18. ESZOPICLONE [Concomitant]
  19. FLAGYL [Concomitant]
  20. LEVAQUIN [Concomitant]
  21. COUMADIN [Concomitant]
  22. SODIUM CHLORIDE 0.9% [Concomitant]

REACTIONS (8)
  - ATRIAL FIBRILLATION [None]
  - CARDIO-RESPIRATORY ARREST [None]
  - DYSPNOEA [None]
  - HAEMOPTYSIS [None]
  - INTRACARDIAC THROMBUS [None]
  - NAUSEA [None]
  - PULMONARY EMBOLISM [None]
  - VOMITING [None]
